FAERS Safety Report 6147907-5 (Version None)
Quarter: 2009Q2

REPORT INFORMATION
  Report Type: 
  Country: None (occurrence: None)
  Receive Date: 20090402
  Receipt Date: 20081209
  Transmission Date: 20091009
  Serious: No
  Sender: FDA-Public Use
  Company Number: 1000004592

PATIENT
  Age: 65 Year
  Sex: Male

DRUGS (4)
  1. BYSTOLIC [Suspect]
     Indication: BLOOD PRESSURE INCREASED
     Dosage: 5 MG (5 MG, 1 IN 1 D), ORAL
     Route: 048
     Dates: start: 20080924, end: 20081024
  2. XANAX (ALPRAZOLAM) (ALPRAZOLAM) [Concomitant]
  3. CIPROFLOXACIN [Concomitant]
  4. EXFORGE [Concomitant]

REACTIONS (2)
  - BLOOD PRESSURE INCREASED [None]
  - HEART RATE DECREASED [None]
